FAERS Safety Report 6638122-7 (Version None)
Quarter: 2010Q1

REPORT INFORMATION
  Report Type: 
  Country: None (occurrence: None)
  Receive Date: 20100301
  Receipt Date: 20090306
  Transmission Date: 20100710
  Serious: Yes (Disabling, Other)
  Sender: FDA-Public Use
  Company Number: ALA_00128_2008

PATIENT
  Sex: Female
  Weight: 96.1626 kg

DRUGS (29)
  1. REGLAN [Suspect]
     Indication: GASTROOESOPHAGEAL REFLUX DISEASE
     Dosage: 10 MG QID ORAL
     Route: 048
     Dates: start: 20070801, end: 20080501
  2. LEVOTHYROXINE SODIUM [Concomitant]
  3. ALLOPURINOL [Concomitant]
  4. TAMOXETINE [Concomitant]
  5. GABAPENTIN [Concomitant]
  6. TRAMADOL HCL [Concomitant]
  7. ATENOLOL [Concomitant]
  8. VYTORIN [Concomitant]
  9. EXFORGE [Concomitant]
  10. FUROSEMIDE [Concomitant]
  11. PREVACID [Concomitant]
  12. LOMOTIL [Concomitant]
  13. ENABLEX [Concomitant]
  14. POTASSIUM [Concomitant]
  15. THERAPEUTIC MULTIVITAMINS [Concomitant]
  16. CALCIUM W/VITAMIN D [Concomitant]
  17. SKELAXIN [Concomitant]
  18. THEOPHYLLINE [Concomitant]
  19. MIACALCIN [Concomitant]
  20. PROAIR HFA [Concomitant]
  21. ADVAIR DISKUS 100/50 [Concomitant]
  22. FLUTICASONE PROPIONATE [Concomitant]
  23. LANTUS [Concomitant]
  24. HUMALOG [Concomitant]
  25. PAROXETINE HCL [Concomitant]
  26. AMOXICILLIN [Concomitant]
  27. MULTIPLE VITAMIN [Concomitant]
  28. ASPIRIN [Concomitant]
  29. SALINE NASAL SPRAY [Concomitant]

REACTIONS (2)
  - CONFUSIONAL STATE [None]
  - TARDIVE DYSKINESIA [None]
